FAERS Safety Report 9229308 (Version 1)
Quarter: 2013Q2

REPORT INFORMATION
  Report Type: Spontaneous
  Country: US (occurrence: US)
  Receive Date: 20130412
  Receipt Date: 20130412
  Transmission Date: 20140414
  Serious: Yes (Hospitalization)
  Sender: FDA-Public Use
  Company Number: US-ASTELLAS-2013US003597

PATIENT
  Age: 44 Year
  Sex: Female
  Weight: 91 kg

DRUGS (2)
  1. PROGRAF [Suspect]
     Indication: HEART TRANSPLANT
     Dosage: 8 MG, UID/QD
     Route: 048
  2. RAPAMUNE [Concomitant]
     Indication: HEART TRANSPLANT
     Dosage: 1 MG, UID/QD
     Route: 065

REACTIONS (2)
  - Drug ineffective [Unknown]
  - Transplant rejection [Unknown]
